FAERS Safety Report 8349237-X (Version None)
Quarter: 2012Q2

REPORT INFORMATION
  Report Type: 
  Country: None (occurrence: None)
  Receive Date: 20120510
  Receipt Date: 20120504
  Transmission Date: 20120825
  Serious: Yes (Other)
  Sender: FDA-Public Use
  Company Number: PHEH2012US007729

PATIENT
  Sex: Male
  Weight: 104.31 kg

DRUGS (2)
  1. GABAPENTIN [Concomitant]
     Indication: PARAESTHESIA
     Dosage: 300 MG, 1-2 TID
     Route: 048
     Dates: start: 20111101
  2. GILENYA [Suspect]
     Indication: RELAPSING-REMITTING MULTIPLE SCLEROSIS
     Dosage: 0.5 MG, QD
     Route: 048
     Dates: start: 20110718, end: 20120106

REACTIONS (15)
  - BLOOD CREATININE DECREASED [None]
  - DEPRESSED MOOD [None]
  - ALANINE AMINOTRANSFERASE INCREASED [None]
  - LYMPHOCYTE COUNT DECREASED [None]
  - VISUAL ACUITY REDUCED [None]
  - ASPARTATE AMINOTRANSFERASE INCREASED [None]
  - IMPAIRED HEALING [None]
  - BLOOD UREA INCREASED [None]
  - NEUTROPHIL PERCENTAGE INCREASED [None]
  - PRURITUS [None]
  - HEPATIC ENZYME INCREASED [None]
  - INSOMNIA [None]
  - MONOCYTE PERCENTAGE INCREASED [None]
  - CEREBRAL PALSY [None]
  - TEMPERATURE INTOLERANCE [None]
